FAERS Safety Report 5664320-5 (Version None)
Quarter: 2008Q1

REPORT INFORMATION
  Report Type: 
  Country: None (occurrence: None)
  Receive Date: 20080312
  Receipt Date: 20080305
  Transmission Date: 20080703
  Serious: Yes (Other)
  Sender: FDA-Public Use
  Company Number: 2008SP003541

PATIENT
  Age: 55 Year
  Sex: Female
  Weight: 63.5036 kg

DRUGS (2)
  1. PEG-INTRON [Suspect]
     Indication: HEPATITIS C
     Dates: start: 20071214
  2. RIBAPAK [Suspect]
     Indication: HEPATITIS C
     Dosage: 1000 MG,QD;PO
     Route: 048
     Dates: start: 20071214

REACTIONS (7)
  - AGEUSIA [None]
  - ASTHENIA [None]
  - DEHYDRATION [None]
  - NAUSEA [None]
  - RED BLOOD CELL COUNT DECREASED [None]
  - TREATMENT NONCOMPLIANCE [None]
  - VOMITING [None]
